FAERS Safety Report 7752898-7 (Version None)
Quarter: 2011Q3

REPORT INFORMATION
  Report Type: 
  Country: None (occurrence: None)
  Receive Date: 20110915
  Receipt Date: 20110909
  Transmission Date: 20111222
  Serious: Yes (Death)
  Sender: FDA-Public Use
  Company Number: US-GENZYME-FLUD-1001375

PATIENT
  Age: 13 Year
  Sex: Male

DRUGS (12)
  1. IDARUBICIN HCL [Suspect]
     Indication: BONE MARROW CONDITIONING REGIMEN
     Dosage: UNK
     Route: 065
  2. CYCLOPHOSPHAMIDE [Suspect]
     Indication: BONE MARROW CONDITIONING REGIMEN
     Dosage: 440 MG/M2, QDX5
     Route: 042
  3. FLUDARA [Suspect]
     Indication: BONE MARROW CONDITIONING REGIMEN
     Dosage: UNK
     Route: 065
  4. CLOLAR [Suspect]
     Indication: BONE MARROW CONDITIONING REGIMEN
     Dosage: 30 MG/M2, QDX5
     Route: 042
  5. CYTARABINE [Suspect]
     Indication: BONE MARROW CONDITIONING REGIMEN
     Dosage: UNK
     Route: 065
  6. CLOLAR [Suspect]
     Indication: ACUTE LYMPHOCYTIC LEUKAEMIA
     Dosage: 30 MG/M2, QDX5
     Route: 042
  7. CYTARABINE [Suspect]
     Indication: ACUTE LYMPHOCYTIC LEUKAEMIA
  8. ETOPOSIDE [Suspect]
     Indication: BONE MARROW CONDITIONING REGIMEN
     Dosage: 100 MG/M2, QDX5
     Route: 042
  9. FLUDARA [Suspect]
     Indication: ACUTE LYMPHOCYTIC LEUKAEMIA
  10. CYCLOPHOSPHAMIDE [Suspect]
     Indication: ACUTE LYMPHOCYTIC LEUKAEMIA
     Dosage: 440 MG/M2, QDX5
     Route: 042
  11. ETOPOSIDE [Suspect]
     Indication: ACUTE LYMPHOCYTIC LEUKAEMIA
     Dosage: 100 MG/M2, QDX5
     Route: 042
  12. IDARUBICIN HCL [Suspect]
     Indication: ACUTE LYMPHOCYTIC LEUKAEMIA

REACTIONS (1)
  - ACUTE LYMPHOCYTIC LEUKAEMIA [None]
